FAERS Safety Report 7600962-5 (Version None)
Quarter: 2011Q3

REPORT INFORMATION
  Report Type: 
  Country: None (occurrence: None)
  Receive Date: 20110711
  Receipt Date: 20110701
  Transmission Date: 20111222
  Serious: Yes (Hospitalization)
  Sender: FDA-Public Use
  Company Number: US-ALEXION-A201100866

PATIENT
  Sex: Female

DRUGS (5)
  1. FIORICET [Concomitant]
     Indication: HEADACHE
     Dosage: UNK
  2. AMBIEN [Concomitant]
     Dosage: UNK
  3. NORCO [Concomitant]
     Indication: HEADACHE
     Dosage: UNK
  4. REGLAN [Concomitant]
     Indication: NAUSEA
     Dosage: UNK
  5. SOLIRIS [Suspect]
     Indication: PAROXYSMAL NOCTURNAL HAEMOGLOBINURIA
     Dosage: 900 MG, Q2W
     Route: 042
     Dates: start: 20090501

REACTIONS (4)
  - ULCER [None]
  - NAUSEA [None]
  - ABDOMINAL PAIN [None]
  - IMPAIRED GASTRIC EMPTYING [None]
